FAERS Safety Report 10899777 (Version 1)
Quarter: 2015Q1

REPORT INFORMATION
  Report Type: Report from Study
  Country: KR (occurrence: KR)
  Receive Date: 20150310
  Receipt Date: 20150310
  Transmission Date: 20150721
  Serious: Yes (Hospitalization)
  Sender: FDA-Public Use
  Company Number: KR-ROCHE-1544370

PATIENT
  Age: 68 Year
  Sex: Male
  Weight: 53.6 kg

DRUGS (19)
  1. TRASTUZUMAB [Suspect]
     Active Substance: TRASTUZUMAB
     Indication: HER-2 POSITIVE GASTRIC CANCER
     Dosage: DATE OF MOST RECENT DOSE OF TRASTUZUMAB: 03/FEB/2015
     Route: 042
     Dates: start: 20140812, end: 20140812
  2. CISPLATIN. [Suspect]
     Active Substance: CISPLATIN
     Indication: HER-2 POSITIVE GASTRIC CANCER
     Dosage: DATE OF MOST RECENT DOSE OF CISPLATIN: 03/FEB/2015?DOSE OF LAST CISPLATIN ADMINISTERED: 128 MG
     Route: 042
     Dates: start: 20140812
  3. SODIUM BICARBONATE. [Concomitant]
     Active Substance: SODIUM BICARBONATE
     Indication: STOMATITIS
     Route: 050
     Dates: start: 20140811
  4. TRASTUZUMAB [Suspect]
     Active Substance: TRASTUZUMAB
     Dosage: DATE OF MOST RECENT DOSE OF TRASTUZUMAB: 03/FEB/2015?MAINTENANCE DOSE
     Route: 042
     Dates: start: 20140902
  5. EMEND [Concomitant]
     Active Substance: APREPITANT
     Indication: VOMITING
  6. NASEA [Concomitant]
     Active Substance: RAMOSETRON HYDROCHLORIDE
     Indication: NAUSEA
     Route: 042
     Dates: start: 20140812
  7. MACPERAN [Concomitant]
     Indication: NAUSEA
     Route: 048
     Dates: start: 20150111, end: 20150121
  8. MAGNESIUM SULFATE. [Concomitant]
     Active Substance: MAGNESIUM SULFATE
     Route: 042
     Dates: start: 20140902
  9. ARESTAL [Concomitant]
     Active Substance: LOPERAMIDE OXIDE
     Indication: DIARRHOEA
     Route: 048
     Dates: start: 20140906
  10. EMEND [Concomitant]
     Active Substance: APREPITANT
     Indication: NAUSEA
     Route: 048
     Dates: start: 20140812
  11. PERTUZUMAB [Suspect]
     Active Substance: PERTUZUMAB
     Indication: HER-2 POSITIVE GASTRIC CANCER
     Dosage: DATE OF MOST RECENT DOSE OF PERTUZUMAB: 03/FEB/2015
     Route: 042
     Dates: start: 20140812
  12. DEXAMETHASONE. [Concomitant]
     Active Substance: DEXAMETHASONE
     Indication: NAUSEA
     Route: 042
     Dates: start: 20140812
  13. COZAAR [Concomitant]
     Active Substance: LOSARTAN POTASSIUM
     Indication: HYPERTENSION
     Route: 048
     Dates: start: 20141118
  14. LASIX [Concomitant]
     Active Substance: FUROSEMIDE
     Indication: HYPERVOLAEMIA
     Route: 042
     Dates: start: 20140902
  15. MEGESTROL [Concomitant]
     Active Substance: MEGESTROL
     Indication: DECREASED APPETITE
     Route: 048
     Dates: start: 20140923
  16. DEXAMETHASONE. [Concomitant]
     Active Substance: DEXAMETHASONE
     Indication: VOMITING
  17. SMECTA [Concomitant]
     Active Substance: MONTMORILLONITE
     Indication: DIARRHOEA
     Route: 048
     Dates: start: 20140906
  18. CAPECITABINE. [Suspect]
     Active Substance: CAPECITABINE
     Indication: HER-2 POSITIVE GASTRIC CANCER
     Dosage: DATE OF MOST RECENT DOSE OF CAPECITABINE: 17/FEB/2015?DOSE OF LAST CAPECITABINE ADMINISTERED: 1300 M
     Route: 048
     Dates: start: 20140812
  19. NASEA [Concomitant]
     Active Substance: RAMOSETRON HYDROCHLORIDE
     Indication: VOMITING

REACTIONS (1)
  - Embolism [Not Recovered/Not Resolved]

NARRATIVE: CASE EVENT DATE: 20150217
